FAERS Safety Report 5814681-9 (Version None)
Quarter: 2008Q3

REPORT INFORMATION
  Report Type: 
  Country: None (occurrence: None)
  Receive Date: 20080718
  Receipt Date: 20080219
  Transmission Date: 20090109
  Serious: No
  Sender: FDA-Public Use
  Company Number: US-KINGPHARMUSA00001-K200800213

PATIENT

DRUGS (4)
  1. LEVOXYL [Suspect]
     Indication: HYPOTHYROIDISM
     Dosage: 75 MCG, QD
     Route: 048
     Dates: start: 20020101
  2. CLONAZEPAM [Suspect]
     Indication: ANXIETY
     Dosage: 1/4 TO 1/2 TABLET, QID
     Route: 048
     Dates: start: 20050101
  3. ACETAMINOPHEN W/ CODEINE [Suspect]
     Indication: PAIN
     Route: 048
  4. METROGEL [Suspect]
     Indication: ROSACEA
     Dosage: 1 APPLICATION, QD
     Route: 061

REACTIONS (9)
  - ANXIETY [None]
  - ARTHRALGIA [None]
  - BURNING SENSATION [None]
  - CONNECTIVE TISSUE DISORDER [None]
  - MYALGIA [None]
  - NIGHTMARE [None]
  - PALPITATIONS [None]
  - PARAESTHESIA [None]
  - PRURITUS [None]
